FAERS Safety Report 4682266-6 (Version None)
Quarter: 2005Q2

REPORT INFORMATION
  Report Type: 
  Country: None (occurrence: None)
  Receive Date: 20050606
  Receipt Date: 20050525
  Transmission Date: 20051028
  Serious: Yes (Hospitalization)
  Sender: FDA-Public Use
  Company Number: PHRM2005FR01661

PATIENT
  Age: 38 Year
  Sex: Male

DRUGS (1)
  1. AREDIA [Suspect]
     Indication: FIBROUS DYSPLASIA OF BONE
     Dosage: 60 MG PER DAY FOR THREE DAYS
     Route: 042
     Dates: start: 20050101

REACTIONS (2)
  - HYPOKALAEMIA [None]
  - SUBILEUS [None]
